FAERS Safety Report 6287966-2 (Version None)
Quarter: 2009Q3

REPORT INFORMATION
  Report Type: 
  Country: None (occurrence: None)
  Receive Date: 20090729
  Receipt Date: 20090722
  Transmission Date: 20100115
  Serious: Yes (Hospitalization)
  Sender: FDA-Public Use
  Company Number: JP-BAYER-200912544BYL

PATIENT
  Age: 68 Year
  Sex: Male
  Weight: 66 kg

DRUGS (8)
  1. NEXAVAR [Suspect]
     Indication: RENAL CELL CARCINOMA STAGE IV
     Dosage: UNIT DOSE: 200 MG
     Route: 048
     Dates: start: 20080623, end: 20080901
  2. NEXAVAR [Suspect]
     Dosage: UNIT DOSE: 200 MG
     Route: 048
     Dates: start: 20081002, end: 20090721
  3. INTERFERON ALFA [Concomitant]
     Route: 065
  4. HOKUNALIN [Concomitant]
     Route: 062
     Dates: start: 20080918
  5. TAKEPRON [Concomitant]
     Route: 048
     Dates: start: 20080918
  6. LENDORMIN [Concomitant]
     Route: 048
     Dates: start: 20080918
  7. DUROTEP [Concomitant]
     Route: 062
     Dates: start: 20080918
  8. URINORM [Concomitant]
     Route: 048
     Dates: start: 20080918

REACTIONS (6)
  - DIARRHOEA [None]
  - DISORIENTATION [None]
  - DIZZINESS [None]
  - NORMAL PRESSURE HYDROCEPHALUS [None]
  - PALMAR-PLANTAR ERYTHRODYSAESTHESIA SYNDROME [None]
  - RASH [None]
